FAERS Safety Report 5716355-1 (Version None)
Quarter: 2008Q2

REPORT INFORMATION
  Report Type: 
  Country: None (occurrence: None)
  Receive Date: 20080424
  Receipt Date: 20080422
  Transmission Date: 20081010
  Serious: Yes (Death, Other)
  Sender: FDA-Public Use
  Company Number: US-BRISTOL-MYERS SQUIBB COMPANY-14154553

PATIENT
  Age: 68 Year
  Sex: Female

DRUGS (11)
  1. SPRYCEL [Suspect]
     Indication: ACUTE LYMPHOCYTIC LEUKAEMIA
     Dates: start: 20080414, end: 20080414
  2. ALLOPURINOL [Concomitant]
  3. DECADRON [Concomitant]
  4. ETOMIDATE [Concomitant]
  5. LASIX [Concomitant]
  6. DILAUDID [Concomitant]
  7. ATIVAN [Concomitant]
  8. VERSED [Concomitant]
  9. PRILOSEC [Concomitant]
  10. RESTORIL [Concomitant]
  11. EFFEXOR [Concomitant]

REACTIONS (2)
  - ACUTE LYMPHOCYTIC LEUKAEMIA [None]
  - DISSEMINATED INTRAVASCULAR COAGULATION [None]
